FAERS Safety Report 5395879-3 (Version None)
Quarter: 2007Q3

REPORT INFORMATION
  Report Type: 
  Country: None (occurrence: None)
  Receive Date: 20070718
  Receipt Date: 20070410
  Transmission Date: 20080115
  Serious: Yes (Hospitalization, Other)
  Sender: FDA-Public Use
  Company Number: 2006133946

PATIENT
  Sex: Male

DRUGS (1)
  1. CELEBREX [Suspect]
     Indication: ARTHRITIS
     Dosage: 100 MG 9100 MG, 1 IN 1 D), ORAL
     Route: 048
     Dates: start: 19990604

REACTIONS (1)
  - MYOCARDIAL INFARCTION [None]
